FAERS Safety Report 18055684 (Version 2)
Quarter: 2021Q3

REPORT INFORMATION
  Report Type: Report from Study
  Country: US (occurrence: US)
  Receive Date: 20200722
  Receipt Date: 20210802
  Transmission Date: 20211014
  Serious: Yes (Hospitalization)
  Sender: FDA-Public Use
  Company Number: US-SHIRE-US202023220

PATIENT
  Age: 11 Year
  Sex: Male

DRUGS (4)
  1. CINRYZE [Suspect]
     Active Substance: HUMAN C1-ESTERASE INHIBITOR
     Indication: HEREDITARY ANGIOEDEMA
     Dosage: 500 INTERNATIONAL UNIT, OTHER (EVERY 4 DAYS)
     Route: 042
  2. 644 (ECALLANTIDE) [Suspect]
     Active Substance: ECALLANTIDE
     Indication: HEREDITARY ANGIOEDEMA
     Dosage: 3 MILLILITER
     Route: 058
  3. CINRYZE [Suspect]
     Active Substance: HUMAN C1-ESTERASE INHIBITOR
     Indication: HEREDITARY ANGIOEDEMA
     Dosage: 500 INTERNATIONAL UNIT, OTHER (EVERY 4 DAYS)
     Route: 042
  4. CINRYZE [Suspect]
     Active Substance: HUMAN C1-ESTERASE INHIBITOR
     Indication: HEREDITARY ANGIOEDEMA
     Dosage: 500 INTERNATIONAL UNIT, OTHER (EVERY 4 DAYS)
     Route: 042

REACTIONS (2)
  - Hip surgery [Recovered/Resolved]
  - Hereditary angioedema [Recovered/Resolved]

NARRATIVE: CASE EVENT DATE: 20200713
